FAERS Safety Report 20979104 (Version 1)
Quarter: 2022Q2

REPORT INFORMATION
  Report Type: Report from Study
  Country: CO (occurrence: CO)
  Receive Date: 20220619
  Receipt Date: 20220619
  Transmission Date: 20220721
  Serious: Yes (Hospitalization, Other)
  Sender: FDA-Public Use
  Company Number: CO-ABBVIE-21K-036-4155742-00

PATIENT
  Age: 48 Year
  Sex: Male
  Weight: 51 kg

DRUGS (2)
  1. ZEMPLAR [Suspect]
     Active Substance: PARICALCITOL
     Indication: Hyperparathyroidism secondary
     Dosage: POST DIALYSIS
     Route: 030
     Dates: start: 20200919, end: 20220316
  2. ZEMPLAR [Suspect]
     Active Substance: PARICALCITOL
     Indication: Chronic kidney disease

REACTIONS (7)
  - Blood pressure abnormal [Recovering/Resolving]
  - Renal disorder [Recovering/Resolving]
  - Mouth haemorrhage [Recovering/Resolving]
  - Epistaxis [Recovering/Resolving]
  - Blood phosphorus abnormal [Not Recovered/Not Resolved]
  - Blood potassium abnormal [Not Recovered/Not Resolved]
  - Nasal congestion [Recovering/Resolving]

NARRATIVE: CASE EVENT DATE: 20211001
